FAERS Safety Report 7774667-4 (Version None)
Quarter: 2011Q3

REPORT INFORMATION
  Report Type: 
  Country: None (occurrence: None)
  Receive Date: 20110923
  Receipt Date: 20110923
  Transmission Date: 20111222
  Serious: Yes (Other)
  Sender: FDA-Public Use
  Company Number: US-PFIZER INC-2011099863

PATIENT
  Sex: Female
  Weight: 53 kg

DRUGS (5)
  1. NEXIUM [Concomitant]
     Indication: GASTRIC DISORDER
     Dosage: UNK
  2. COREG [Concomitant]
     Indication: CARDIAC DISORDER
     Dosage: UNK
  3. LIPITOR [Concomitant]
     Indication: BLOOD CHOLESTEROL INCREASED
     Dosage: UNK
  4. WARFARIN [Concomitant]
     Indication: ANTICOAGULANT THERAPY
     Dosage: UNK
  5. TIKOSYN [Suspect]
     Indication: ATRIAL FIBRILLATION
     Dosage: 250 MCG, UNK
     Route: 048
     Dates: start: 20110324

REACTIONS (2)
  - CARDIAC FAILURE [None]
  - BLOOD GLUCOSE INCREASED [None]
